FAERS Safety Report 7747703-9 (Version None)
Quarter: 2011Q3

REPORT INFORMATION
  Report Type: 
  Country: None (occurrence: None)
  Receive Date: 20110913
  Receipt Date: 20110901
  Transmission Date: 20111222
  Serious: Yes (Hospitalization, Other)
  Sender: FDA-Public Use
  Company Number: FR-ELI_LILLY_AND_COMPANY-FR201109000177

PATIENT
  Sex: Female
  Weight: 115 kg

DRUGS (9)
  1. PERINDOPRIL ERBUMINE [Concomitant]
     Indication: HYPERTENSION
     Dosage: 10 MG, QD
     Dates: start: 20090801, end: 20110718
  2. LEVOTHYROXINE SODIUM [Concomitant]
     Indication: HYPOTHYROIDISM
     Dosage: 125 MG, QD
     Route: 048
     Dates: start: 20080101
  3. METFORMIN HCL [Concomitant]
     Indication: TYPE 2 DIABETES MELLITUS
     Dosage: 1000 MG, TID
     Dates: start: 19970101, end: 20110718
  4. ENBREL [Concomitant]
     Indication: SPINAL OSTEOARTHRITIS
     Dosage: 50 MG, WEEKLY (1/W)
     Dates: start: 20080501
  5. BISOPROLOL FUMARATE [Concomitant]
     Indication: HYPERTENSION
     Dosage: 10 MG, QD
     Dates: start: 20090801
  6. GLUCOPHAGE                              /USA/ [Concomitant]
     Route: 048
  7. BYETTA [Suspect]
     Indication: TYPE 2 DIABETES MELLITUS
     Dosage: 10 UG, BID
     Route: 058
     Dates: start: 20100301, end: 20110710
  8. METHOTREXATE [Concomitant]
     Indication: SPINAL OSTEOARTHRITIS
     Dosage: 20 MG, WEEKLY (1/W)
     Route: 058
     Dates: start: 20071101, end: 20110714
  9. FUROSEMIDE [Concomitant]
     Indication: HYPERTENSION
     Dosage: 1 DF, QD
     Dates: start: 20090801, end: 20110718

REACTIONS (4)
  - DIARRHOEA [None]
  - NAUSEA [None]
  - RENAL FAILURE ACUTE [None]
  - VOMITING [None]
